FAERS Safety Report 19165235 (Version 2)
Quarter: 2021Q2

REPORT INFORMATION
  Report Type: Spontaneous
  Country: CA (occurrence: CA)
  Receive Date: 20210421
  Receipt Date: 20210610
  Transmission Date: 20210717
  Serious: Yes (Other)
  Sender: FDA-Public Use
  Company Number: CA-PFIZER INC-2020406789

PATIENT
  Age: 68 Year
  Sex: Male

DRUGS (10)
  1. BISOPROLOL [Concomitant]
     Active Substance: BISOPROLOL
     Dosage: 5 MG, 1X/DAY
  2. PANTOPRAZOLE [Concomitant]
     Active Substance: PANTOPRAZOLE
     Dosage: 40 MG (UNKNOWN FREQUENCY)
  3. RAMIPRIL. [Concomitant]
     Active Substance: RAMIPRIL
     Dosage: 2.5 MG, 1X/DAY (OD)
  4. ATORVASTATIN [Concomitant]
     Active Substance: ATORVASTATIN
     Dosage: 80 MG, 1X/DAY
     Route: 041
  5. ELIQUIS [Concomitant]
     Active Substance: APIXABAN
     Dosage: 5 MG, 2X/DAY
  6. CLOPIDOGREL [Concomitant]
     Active Substance: CLOPIDOGREL BISULFATE
     Dosage: 75 MG, 1X/DAY
  7. RUXIENCE [Suspect]
     Active Substance: RITUXIMAB-PVVR
     Indication: EOSINOPHILIC GRANULOMATOSIS WITH POLYANGIITIS
     Dosage: 500 MG EVERY (Q) 6 MONTHS
     Route: 042
     Dates: start: 20210323
  8. PREDNISONE. [Concomitant]
     Active Substance: PREDNISONE
     Dosage: 15 MG, 1X/DAY
  9. MYCOPHENOLATE [Concomitant]
     Active Substance: MYCOPHENOLIC ACID
     Dosage: 500 MG, 2X/DAY
  10. BASAGLAR [Concomitant]
     Active Substance: INSULIN GLARGINE
     Dosage: 1 DF (23 UNITS AM, PM)

REACTIONS (2)
  - Off label use [Unknown]
  - Blood glucose increased [Unknown]
